FAERS Safety Report 5663866-3 (Version None)
Quarter: 2008Q1

REPORT INFORMATION
  Report Type: 
  Country: None (occurrence: None)
  Receive Date: 20080311
  Receipt Date: 20080220
  Transmission Date: 20080703
  Serious: Yes (Death, Hospitalization, Other)
  Sender: FDA-Public Use
  Company Number: 2008JP000911

PATIENT
  Age: 51 Year
  Sex: Male

DRUGS (8)
  1. TACROLIMUS [Suspect]
     Indication: LIVER TRANSPLANT
  2. CORTICOSTEROIDS () FORMULATION UNKNOWN [Suspect]
     Indication: LIVER TRANSPLANT
  3. IMMUNOGLOBULIN ANTIHEPATITIS B (IMMUNOGLOBULIN ANTIHEPATITIS B) [Concomitant]
  4. LAMIVUDINE [Concomitant]
  5. VANCOMYCIN [Concomitant]
  6. GANCICLOVIR [Concomitant]
  7. PREDISOLONE (PREDNISOLONE) [Concomitant]
  8. MYCOPHENOLATE MOFETIL [Concomitant]

REACTIONS (11)
  - ABDOMINAL PAIN [None]
  - ACUTE GRAFT VERSUS HOST DISEASE [None]
  - CENTRAL NERVOUS SYSTEM INFECTION [None]
  - CLOSTRIDIAL INFECTION [None]
  - CRYPTOCOCCOSIS [None]
  - CYTOMEGALOVIRUS INFECTION [None]
  - DEHYDRATION [None]
  - DIARRHOEA [None]
  - LEUKOPENIA [None]
  - ORAL INTAKE REDUCED [None]
  - SEPTIC SHOCK [None]
